FAERS Safety Report 25524351 (Version 1)
Quarter: 2025Q3

REPORT INFORMATION
  Report Type: Spontaneous
  Country: US (occurrence: None)
  Receive Date: 20250704
  Receipt Date: 20250704
  Transmission Date: 20251020
  Serious: Yes (Death, Life-Threatening, Hospitalization, Disabling)
  Sender: FDA-CTU
  Company Number: None

PATIENT
  Age: 73 Year
  Sex: Female
  Weight: 60.75 kg

DRUGS (2)
  1. KEYTRUDA [Suspect]
     Active Substance: PEMBROLIZUMAB
     Indication: Lung carcinoma cell type unspecified recurrent
     Route: 042
     Dates: start: 20250124, end: 20250221
  2. KEYTRUDA [Suspect]
     Active Substance: PEMBROLIZUMAB
     Indication: Prophylaxis

REACTIONS (10)
  - Pneumonia [None]
  - Pneumonitis [None]
  - Pulmonary mass [None]
  - Sepsis [None]
  - Acute respiratory failure [None]
  - Hypotension [None]
  - Mental status changes [None]
  - Ammonia increased [None]
  - Liver function test increased [None]
  - Haemangioma of liver [None]

NARRATIVE: CASE EVENT DATE: 20250221
